FAERS Safety Report 6148933-2 (Version None)
Quarter: 2009Q2

REPORT INFORMATION
  Report Type: 
  Country: None (occurrence: None)
  Receive Date: 20090406
  Receipt Date: 20090323
  Transmission Date: 20091009
  Serious: Yes (Hospitalization, Other)
  Sender: FDA-Public Use
  Company Number: GXKR2009FR03778

PATIENT
  Age: 28 Year
  Sex: Female

DRUGS (1)
  1. BROMOCRIPTINE (NGX) (BROMOCRIPTINE) [Suspect]

REACTIONS (2)
  - CEREBROVASCULAR ACCIDENT [None]
  - PERIPHERAL ISCHAEMIA [None]
